FAERS Safety Report 4819092-0 (Version None)
Quarter: 2005Q4

REPORT INFORMATION
  Report Type: 
  Country: None (occurrence: None)
  Receive Date: 20051103
  Receipt Date: 20051027
  Transmission Date: 20060501
  Serious: Yes (Life-Threatening)
  Sender: FDA-Public Use
  Company Number: 2005AC01700

PATIENT
  Sex: Male

DRUGS (3)
  1. DIPRIVAN [Suspect]
  2. LINESOL [Concomitant]
  3. ALFENTANIL [Concomitant]

REACTIONS (1)
  - SHOCK [None]
